FAERS Safety Report 19611460 (Version 11)
Quarter: 2024Q1

REPORT INFORMATION
  Report Type: Spontaneous
  Country: US (occurrence: US)
  Receive Date: 20210726
  Receipt Date: 20240227
  Transmission Date: 20240409
  Serious: No
  Sender: FDA-Public Use
  Company Number: US-PFIZER INC-2021075888

PATIENT
  Age: 78 Year
  Sex: Female
  Weight: 72.57 kg

DRUGS (12)
  1. IBRANCE [Suspect]
     Active Substance: PALBOCICLIB
     Indication: Breast cancer metastatic
     Dosage: 125 MG, CYCLIC (ONCE A DAY BY MOUTH FOR 21 DAYS THEN 7 DAYS OFF.)
     Route: 048
     Dates: start: 201508
  2. IBRANCE [Suspect]
     Active Substance: PALBOCICLIB
     Dosage: 125 MG, CYCLIC (ONCE DAILY FOR 21 DAYS ON , OFF 7 DAYS)
     Route: 048
     Dates: start: 2016
  3. IBRANCE [Suspect]
     Active Substance: PALBOCICLIB
     Dosage: 100 MG, CYCLIC (TAKE ONE TABLET FOR 21 DAYS AND OFF FOR 7 DAYS)
     Route: 048
  4. IBRANCE [Suspect]
     Active Substance: PALBOCICLIB
     Dosage: 100 MG DAILY FOR 21 DAYS ON FOLLOWED BY 7 DAYS OFF
     Route: 048
     Dates: start: 20220101
  5. LETROZOLE [Concomitant]
     Active Substance: LETROZOLE
  6. FEXOFENADINE [Concomitant]
     Active Substance: FEXOFENADINE HYDROCHLORIDE
  7. ATORVASTATIN [Concomitant]
     Active Substance: ATORVASTATIN
  8. FERRLECIT [ASCORBIC ACID;FERRIC SODIUM CITRATE;FERROUS SULFATE] [Concomitant]
     Dosage: STRENGTH: 12.5 MG/ML
  9. GLUCOSAMINE [Concomitant]
     Active Substance: GLUCOSAMINE
  10. POTASSIUM CHLORIDE [Concomitant]
     Active Substance: POTASSIUM CHLORIDE
     Dosage: STRENGTH: 10MEQ ER
  11. VITAMIN B COMPLEX [Concomitant]
     Active Substance: CYANOCOBALAMIN\DEXPANTHENOL\NIACINAMIDE\PYRIDOXINE HYDROCHLORIDE\RIBOFLAVIN 5^-PHOSPHATE SODIUM\THIA
  12. VITAMIN D3 [Concomitant]
     Active Substance: CHOLECALCIFEROL

REACTIONS (4)
  - Full blood count decreased [Unknown]
  - Fatigue [Not Recovered/Not Resolved]
  - Alopecia [Not Recovered/Not Resolved]
  - Anaemia [Recovering/Resolving]
